FAERS Safety Report 8871332 (Version 1)
Quarter: 2012Q4

REPORT INFORMATION
  Report Type: 
  Country: US (occurrence: US)
  Receive Date: 20121029
  Receipt Date: 20121029
  Transmission Date: 20130627
  Serious: No
  Sender: FDA-Public Use
  Company Number: US-MYLANLABS-2012S1015810

PATIENT
  Sex: Male

DRUGS (7)
  1. CLONIDINE [Suspect]
     Indication: BLOOD PRESSURE INCREASED
     Dosage: Changed qw
     Route: 062
  2. DIGOXIN [Concomitant]
  3. AMIODARONE [Concomitant]
  4. LOSARTAN [Concomitant]
  5. BISOPROLOL [Concomitant]
  6. FLOMAX /01280302/ [Concomitant]
  7. HYDROCHLOROTHIAZIDE [Concomitant]

REACTIONS (3)
  - Drug ineffective [Not Recovered/Not Resolved]
  - Blood pressure increased [Not Recovered/Not Resolved]
  - Application site paraesthesia [Recovered/Resolved]
